FAERS Safety Report 5393658-4 (Version None)
Quarter: 2007Q3

REPORT INFORMATION
  Report Type: 
  Country: None (occurrence: None)
  Receive Date: 20070719
  Receipt Date: 20070719
  Transmission Date: 20080115
  Serious: Yes (Hospitalization)
  Sender: FDA-Public Use
  Company Number: None

PATIENT
  Age: 75 Year
  Sex: Female
  Weight: 82 kg

DRUGS (5)
  1. GEMCITABINE [Suspect]
     Indication: PANCREATIC CARCINOMA METASTATIC
     Dosage: 1GM/M2 IV WEEKLY
     Route: 042
     Dates: start: 20070531
  2. GEMCITABINE [Suspect]
     Indication: PANCREATIC CARCINOMA METASTATIC
     Dosage: 1GM/M2 IV WEEKLY
     Route: 042
     Dates: start: 20070607
  3. GEMCITABINE [Suspect]
     Indication: PANCREATIC CARCINOMA METASTATIC
     Dosage: 1GM/M2 IV WEEKLY
     Route: 042
     Dates: start: 20070614
  4. GEMCITABINE [Suspect]
     Indication: PANCREATIC CARCINOMA METASTATIC
     Dosage: 1GM/M2 IV WEEKLY
     Route: 042
     Dates: start: 20070629
  5. LAPATINIB [Suspect]
     Indication: PANCREATIC CARCINOMA METASTATIC
     Dosage: 1500MG PO Q DAY
     Route: 048
     Dates: start: 20070601, end: 20070629

REACTIONS (6)
  - ANAEMIA [None]
  - ATRIAL FIBRILLATION [None]
  - PALPITATIONS [None]
  - PULMONARY EMBOLISM [None]
  - RENAL FAILURE ACUTE [None]
  - THROMBOSIS [None]
